FAERS Safety Report 10683296 (Version 1)
Quarter: 2014Q4

REPORT INFORMATION
  Report Type: Spontaneous
  Country: BR (occurrence: BR)
  Receive Date: 20141230
  Receipt Date: 20141230
  Transmission Date: 20150529
  Serious: Yes (Hospitalization)
  Sender: FDA-Public Use
  Company Number: BR-009507513-1412BRA013099

PATIENT
  Sex: Female
  Weight: 55 kg

DRUGS (3)
  1. ANGIPRESS (ATENOLOL) [Concomitant]
     Indication: BLOOD PRESSURE INCREASED
     Dosage: 50 MG, QAM
     Route: 048
     Dates: start: 2000
  2. VYTORIN [Suspect]
     Active Substance: EZETIMIBE\SIMVASTATIN
     Indication: BLOOD CHOLESTEROL INCREASED
     Dosage: 10-20 MG QD
     Route: 048
     Dates: start: 2000, end: 20141113
  3. VYTORIN [Suspect]
     Active Substance: EZETIMIBE\SIMVASTATIN
     Dosage: 10-40 MG QD
     Route: 048
     Dates: start: 201411

REACTIONS (6)
  - Syncope [Unknown]
  - Vitamin E deficiency [Not Recovered/Not Resolved]
  - Vitamin D deficiency [Not Recovered/Not Resolved]
  - Bladder calculus removal [Recovered/Resolved]
  - Labyrinthitis [Not Recovered/Not Resolved]
  - Drug ineffective [Recovered/Resolved]

NARRATIVE: CASE EVENT DATE: 2006
